FAERS Safety Report 11887514 (Version 1)
Quarter: 2016Q1

REPORT INFORMATION
  Report Type: Spontaneous
  Country: GB (occurrence: GB)
  Receive Date: 20160105
  Receipt Date: 20160105
  Transmission Date: 20160526
  Serious: Yes (Death)
  Sender: FDA-Public Use
  Company Number: PHHY2015GB168578

PATIENT
  Age: 35 Year
  Sex: Male

DRUGS (8)
  1. CANNABIS SATIVA [Suspect]
     Active Substance: CANNABIS SATIVA SUBSP. SATIVA FLOWERING TOP
     Indication: PRODUCT USED FOR UNKNOWN INDICATION
     Route: 065
  2. SODIUM PHOSPHATE [Concomitant]
     Active Substance: SODIUM PHOSPHATE
     Indication: CONSTIPATION
     Dosage: 1 DF, UNK
     Route: 054
     Dates: start: 20150626
  3. MIRTAZAPINE. [Suspect]
     Active Substance: MIRTAZAPINE
     Indication: DEPRESSION
     Dosage: 30 MG, QD
     Route: 048
     Dates: start: 20150626
  4. CLENIL MODULITE [Concomitant]
     Active Substance: BECLOMETHASONE DIPROPIONATE
     Indication: ASTHMA
     Dosage: 200 UG, UNK
     Route: 055
     Dates: start: 20150626
  5. ZAPONEX [Suspect]
     Active Substance: CLOZAPINE
     Indication: SCHIZOPHRENIA
     Dosage: 25 MG MANE AND 600 MG NOCTE
     Route: 048
     Dates: start: 20060118, end: 20151013
  6. MOVICOL [Concomitant]
     Active Substance: POLYETHYLENE GLYCOL 3350\POTASSIUM CHLORIDE\SODIUM BICARBONATE\SODIUM CHLORIDE
     Indication: CONSTIPATION
     Dosage: 1-2 SACHETS
     Route: 048
     Dates: start: 20150626
  7. VALPROATE SODIUM. [Concomitant]
     Active Substance: VALPROATE SODIUM
     Indication: SCHIZOPHRENIA
     Dosage: 600 MG, UNK
     Route: 048
     Dates: start: 20150626
  8. SALBUTAMOL [Concomitant]
     Active Substance: ALBUTEROL
     Indication: ASTHMA
     Dosage: 100 UG, UNK
     Route: 055
     Dates: start: 20150626

REACTIONS (2)
  - Toxicity to various agents [Fatal]
  - Antipsychotic drug level increased [Fatal]
